FAERS Safety Report 4369214-3 (Version None)
Quarter: 2004Q2

REPORT INFORMATION
  Report Type: 
  Country: None (occurrence: None)
  Receive Date: 20040601
  Receipt Date: 20040601
  Transmission Date: 20050107
  Serious: No
  Sender: FDA-Public Use
  Company Number: None

PATIENT
  Age: 47 Year
  Sex: Female
  Weight: 73.0291 kg

DRUGS (3)
  1. DIOVAN [Suspect]
     Indication: HEPATITIS
     Dosage: 80 MG DAILY
     Dates: start: 20010101, end: 20031201
  2. DIOVAN [Suspect]
     Indication: HEPATITIS
     Dosage: 80 MG DAILY
     Dates: start: 20040101, end: 20040301
  3. DIOVAN [Suspect]
     Indication: HEPATITIS
     Dosage: 80 MG DAILY
     Dates: start: 20040501

REACTIONS (5)
  - BIOPSY LIVER ABNORMAL [None]
  - HEPATIC FIBROSIS [None]
  - INFLAMMATION [None]
  - LIVER DISORDER [None]
  - LIVER FUNCTION TEST ABNORMAL [None]
